FAERS Safety Report 5052725-5 (Version None)
Quarter: 2006Q3

REPORT INFORMATION
  Report Type: 
  Country: None (occurrence: None)
  Receive Date: 20060717
  Receipt Date: 20060208
  Transmission Date: 20061208
  Serious: Yes (Hospitalization)
  Sender: FDA-Public Use
  Company Number: GB-MERCK-0602GBR00063

PATIENT
  Age: 80 Year
  Sex: Female
  Weight: 75 kg

DRUGS (8)
  1. ZOCOR [Suspect]
     Indication: HYPERCHOLESTEROLAEMIA
     Route: 048
     Dates: start: 19890101, end: 20000201
  2. ZOCOR [Suspect]
     Route: 048
     Dates: start: 20031001, end: 20041201
  3. ZOCOR [Suspect]
     Route: 048
     Dates: start: 20000201, end: 20031001
  4. ZOCOR [Suspect]
     Route: 048
     Dates: start: 20041201, end: 20050901
  5. DIPYRIDAMOLE [Concomitant]
     Indication: CEREBROVASCULAR ACCIDENT PROPHYLAXIS
     Route: 048
     Dates: start: 20010523
  6. ATENOLOL [Concomitant]
     Indication: HYPERTENSION
     Route: 048
     Dates: start: 20010531
  7. LEVOTHYROXINE SODIUM [Concomitant]
     Indication: HYPOTHYROIDISM
     Route: 048
     Dates: start: 19940101
  8. ASPIRIN [Concomitant]
     Indication: CEREBROVASCULAR ACCIDENT PROPHYLAXIS
     Route: 048
     Dates: start: 20000101

REACTIONS (2)
  - BURNING SENSATION [None]
  - CEREBROVASCULAR ACCIDENT [None]
